FAERS Safety Report 5074870-0 (Version None)
Quarter: 2006Q3

REPORT INFORMATION
  Report Type: 
  Country: None (occurrence: None)
  Receive Date: 20060804
  Receipt Date: 20060724
  Transmission Date: 20061208
  Serious: Yes (Other)
  Sender: FDA-Public Use
  Company Number: 2006093123

PATIENT
  Age: 56 Year
  Sex: Male
  Weight: 122.0176 kg

DRUGS (1)
  1. BEXTRA [Suspect]
     Indication: OSTEOARTHRITIS
     Dosage: 20 MG (20 MG, 1 IN 1 D)
     Dates: start: 20041001, end: 20041101

REACTIONS (2)
  - CONDITION AGGRAVATED [None]
  - CORONARY ARTERY DISEASE [None]
